FAERS Safety Report 20990138 (Version 1)
Quarter: 2022Q2

REPORT INFORMATION
  Report Type: Spontaneous
  Country: US (occurrence: US)
  Receive Date: 20220621
  Receipt Date: 20220621
  Transmission Date: 20220721
  Serious: No
  Sender: FDA-Public Use
  Company Number: US-PURDUE PHARMA-USA-2022-0293136

PATIENT

DRUGS (1)
  1. OXYCODONE HYDROCHLORIDE [Suspect]
     Active Substance: OXYCODONE HYDROCHLORIDE
     Indication: Pain
     Dosage: 20 MG, UNK
     Route: 065
     Dates: start: 20220321

REACTIONS (4)
  - Ophthalmic migraine [Unknown]
  - Illness [Unknown]
  - Vomiting [Unknown]
  - Therapeutic product effect incomplete [Unknown]
